FAERS Safety Report 9730105 (Version 2)
Quarter: 2016Q1

REPORT INFORMATION
  Report Type: Report from Study
  Country: US (occurrence: US)
  Receive Date: 20131204
  Receipt Date: 20160126
  Transmission Date: 20160526
  Serious: Yes (Hospitalization)
  Sender: FDA-Public Use
  Company Number: US-BAXTER-2013BAX047709

PATIENT
  Age: 79 Year
  Sex: Male
  Weight: 76.23 kg

DRUGS (3)
  1. CYTOXAN [Suspect]
     Active Substance: CYCLOPHOSPHAMIDE
     Indication: PLASMA CELL MYELOMA
     Route: 048
     Dates: start: 20130606, end: 20130930
  2. DEXAMETHASONE. [Suspect]
     Active Substance: DEXAMETHASONE
     Indication: PLASMA CELL MYELOMA
     Route: 048
     Dates: start: 20130516, end: 20130930
  3. VELCADE [Suspect]
     Active Substance: BORTEZOMIB
     Indication: PLASMA CELL MYELOMA
     Route: 058
     Dates: start: 20130516, end: 20130930

REACTIONS (1)
  - Subdural haematoma [Recovered/Resolved]

NARRATIVE: CASE EVENT DATE: 20130930
